APPROVED DRUG PRODUCT: FLAGYL ER
Active Ingredient: METRONIDAZOLE
Strength: 750MG
Dosage Form/Route: TABLET, EXTENDED RELEASE;ORAL
Application: N020868 | Product #001
Applicant: PFIZER INC
Approved: Nov 26, 1997 | RLD: Yes | RS: No | Type: DISCN